FAERS Safety Report 5528574-8 (Version None)
Quarter: 2007Q4

REPORT INFORMATION
  Report Type: 
  Country: None (occurrence: None)
  Receive Date: 20071123
  Receipt Date: 20071109
  Transmission Date: 20080405
  Serious: Yes (Other)
  Sender: FDA-Public Use
  Company Number: M7001-02877-SPO-FR

PATIENT
  Age: 80 Year
  Sex: Female

DRUGS (4)
  1. TARGRETIN [Suspect]
     Dosage: 225 MG, 3 IN 1 D, ORAL
     Route: 048
  2. PREVISCAN (FLUINDIONE) [Suspect]
     Indication: ARRHYTHMIA
     Dosage: ORAL
     Route: 048
  3. FENOFIBRATE [Concomitant]
  4. ANTI-HYPERTENSIVE (ANTIHYPERTENSIVES) [Concomitant]

REACTIONS (2)
  - DRUG INTERACTION [None]
  - INTERNATIONAL NORMALISED RATIO INCREASED [None]
